FAERS Safety Report 5883801-2 (Version None)
Quarter: 2008Q3

REPORT INFORMATION
  Report Type: 
  Country: None (occurrence: None)
  Receive Date: 20080915
  Receipt Date: 20080905
  Transmission Date: 20090109
  Serious: Yes (Hospitalization, Other)
  Sender: FDA-Public Use
  Company Number: US-AMGEN-QUU300579

PATIENT
  Sex: Female
  Weight: 51.3 kg

DRUGS (12)
  1. ENBREL [Suspect]
     Indication: RHEUMATOID ARTHRITIS
     Route: 058
     Dates: start: 20070823
  2. PLAQUENIL [Concomitant]
     Route: 048
  3. HYDROCODONE BITARTRATE + ACETAMINOPHEN [Concomitant]
     Route: 048
  4. CLONAZEPAM [Concomitant]
     Route: 048
  5. PROPOXYPHENE [Concomitant]
     Route: 048
  6. OMEPRAZOLE [Concomitant]
     Route: 048
  7. CLOTRIMAZOLE [Concomitant]
     Route: 048
  8. LEVOTHROID [Concomitant]
     Route: 048
  9. SERTRALINE [Concomitant]
     Route: 048
  10. NAPROXEN [Concomitant]
     Route: 048
  11. NORCO [Concomitant]
  12. DARVON [Concomitant]

REACTIONS (13)
  - ANXIETY [None]
  - ASCITES [None]
  - CYST [None]
  - DEPRESSION [None]
  - DRUG DEPENDENCE [None]
  - DRUG WITHDRAWAL SYNDROME [None]
  - ESCHERICHIA SEPSIS [None]
  - HYPOTHYROIDISM [None]
  - PAIN [None]
  - PLEURAL EFFUSION [None]
  - PYELONEPHRITIS [None]
  - RHEUMATOID ARTHRITIS [None]
  - UROSEPSIS [None]
